FAERS Safety Report 14534148 (Version 1)
Quarter: 2018Q1

REPORT INFORMATION
  Report Type: Report from Study
  Country: UA (occurrence: UA)
  Receive Date: 20180215
  Receipt Date: 20180215
  Transmission Date: 20180509
  Serious: Yes (Other)
  Sender: FDA-Public Use
  Company Number: UA-TEVA-2018-UA-856295

PATIENT
  Age: 3 Year
  Sex: Male
  Weight: 15 kg

DRUGS (6)
  1. VINCRISTINE [Suspect]
     Active Substance: VINCRISTINE
     Indication: EMBRYONAL RHABDOMYOSARCOMA
     Dosage: .97 MILLIGRAM DAILY; 1 DAY OF CYCLE, DATE OF LAST DOSE PRIOR TO SAE ONSET: 22-MAY-2017
     Route: 042
     Dates: start: 20170216
  2. NEUPOGEN [Suspect]
     Active Substance: FILGRASTIM
     Indication: PROPHYLAXIS
     Dosage: 75 MICROGRAM DAILY; DATE OF LAST DOSE PRIOR TO SAE ONSET: 12-MAY-2017
     Route: 058
     Dates: start: 20170218
  3. IFOSFAMIDE. [Suspect]
     Active Substance: IFOSFAMIDE
     Indication: EMBRYONAL RHABDOMYOSARCOMA
     Dosage: 1936 MILLIGRAM DAILY; 1 AND 2 DAY OF CYCLE, DATE OF LAST DOSE PRIOR TO SAE ONSET: 23-MAY-2017
     Route: 042
     Dates: start: 20170216
  4. ACTINOMYCIN D [Suspect]
     Active Substance: DACTINOMYCIN
     Indication: EMBRYONAL RHABDOMYOSARCOMA
     Dosage: 1 DAY OF CYCLE, DATE OF LAST DOSE PRIOR TO SAE ONSET: 22-MAY-2017
     Route: 042
     Dates: start: 20170216
  5. LONQUEX [Suspect]
     Active Substance: LIPEGFILGRASTIM
  6. CANCIDAS [Concomitant]
     Active Substance: CASPOFUNGIN ACETATE
     Indication: MUCOSAL INFLAMMATION
     Dosage: 25 MILLIGRAM DAILY;
     Route: 042
     Dates: start: 20170523

REACTIONS (1)
  - Lymphopenia [Recovered/Resolved]

NARRATIVE: CASE EVENT DATE: 20170619
